FAERS Safety Report 18392935 (Version 2)
Quarter: 2020Q4

REPORT INFORMATION
  Report Type: Spontaneous
  Country: US (occurrence: US)
  Receive Date: 20201016
  Receipt Date: 20201102
  Transmission Date: 20210114
  Serious: Yes (Other)
  Sender: FDA-Public Use
  Company Number: US-GLENMARK PHARMACEUTICALS-2020GMK049931

PATIENT

DRUGS (2)
  1. MUPIROCIN OINTMENT USP, 2% [Suspect]
     Active Substance: MUPIROCIN
     Indication: SKIN EROSION
     Dosage: UNK, PRN
     Route: 061
     Dates: start: 20200812, end: 202008
  2. MUPIROCIN OINTMENT USP, 2% [Suspect]
     Active Substance: MUPIROCIN
     Indication: PRECANCEROUS SKIN LESION

REACTIONS (11)
  - Product use in unapproved indication [Unknown]
  - Nasopharyngitis [Recovered/Resolved]
  - Urticaria [Not Recovered/Not Resolved]
  - Chills [Recovered/Resolved]
  - Skin ulcer [Unknown]
  - Blister [Not Recovered/Not Resolved]
  - Wrong technique in product usage process [Unknown]
  - Loss of consciousness [Unknown]
  - Rash papular [Not Recovered/Not Resolved]
  - Body temperature decreased [Recovered/Resolved]
  - Hypersensitivity [Unknown]

NARRATIVE: CASE EVENT DATE: 20200812
